FAERS Safety Report 7795662-5 (Version None)
Quarter: 2011Q4

REPORT INFORMATION
  Report Type: 
  Country: None (occurrence: None)
  Receive Date: 20111004
  Receipt Date: 20110927
  Transmission Date: 20120403
  Serious: Yes (Other)
  Sender: FDA-Public Use
  Company Number: JP-GLAXOSMITHKLINE-B0751100A

PATIENT
  Sex: Female

DRUGS (2)
  1. LAMICTAL [Suspect]
     Indication: PARTIAL SEIZURES
     Dosage: 25MG TWICE PER DAY
     Route: 048
     Dates: start: 20110817, end: 20110828
  2. VALERIN (JAPAN) [Concomitant]
     Indication: PARTIAL SEIZURES
     Dosage: 800MG PER DAY
     Route: 048

REACTIONS (3)
  - ECZEMA [None]
  - STOMATITIS [None]
  - ERYTHEMA MULTIFORME [None]
